FAERS Safety Report 21190744 (Version 1)
Quarter: 2022Q3

REPORT INFORMATION
  Report Type: Spontaneous
  Country: US (occurrence: US)
  Receive Date: 20220809
  Receipt Date: 20220809
  Transmission Date: 20221026
  Serious: No
  Sender: FDA-Public Use
  Company Number: US-TEVA-2022-US-2059945

PATIENT
  Sex: Female

DRUGS (1)
  1. ESTRADIOL [Suspect]
     Active Substance: ESTRADIOL
     Indication: Product used for unknown indication
     Route: 065

REACTIONS (8)
  - Alopecia [Unknown]
  - Libido increased [Not Recovered/Not Resolved]
  - Virilism [Not Recovered/Not Resolved]
  - Blood testosterone decreased [Unknown]
  - Endocrine disorder [Unknown]
  - Product solubility abnormal [Not Recovered/Not Resolved]
  - Product physical issue [Not Recovered/Not Resolved]
  - Weight decreased [Unknown]
